FAERS Safety Report 14238534 (Version 1)
Quarter: 2017Q4

REPORT INFORMATION
  Report Type: Spontaneous
  Country: US (occurrence: None)
  Receive Date: 20171129
  Receipt Date: 20171129
  Transmission Date: 20180321
  Serious: Yes (Life-Threatening, Hospitalization)
  Sender: FDA-Public Use
  Company Number: None

PATIENT
  Age: 35 Year
  Sex: Male
  Weight: 85.28 kg

DRUGS (2)
  1. ENOXAPARIN (GENERIC) [Suspect]
     Active Substance: ENOXAPARIN
     Indication: DEEP VEIN THROMBOSIS
     Route: 058
     Dates: start: 20170323, end: 20170612
  2. ERTAPENEM. [Suspect]
     Active Substance: ERTAPENEM SODIUM
     Indication: SYSTEMIC INFLAMMATORY RESPONSE SYNDROME
     Route: 030
     Dates: start: 20170611, end: 20170612

REACTIONS (2)
  - Anaemia [None]
  - Haematoma [None]

NARRATIVE: CASE EVENT DATE: 20170612
